FAERS Safety Report 15867459 (Version 2)
Quarter: 2019Q1

REPORT INFORMATION
  Report Type: Report from Study
  Country: US (occurrence: US)
  Receive Date: 20190125
  Receipt Date: 20190130
  Transmission Date: 20190417
  Serious: Yes (Hospitalization)
  Sender: FDA-Public Use
  Company Number: US-EMD SERONO-9066556

PATIENT
  Age: 72 Year
  Sex: Male
  Weight: 64 kg

DRUGS (7)
  1. CIALIS [Concomitant]
     Active Substance: TADALAFIL
     Indication: ERECTILE DYSFUNCTION
     Dates: start: 20160809
  2. VX15/2503 [Suspect]
     Active Substance: PEPINEMAB
     Indication: LUNG CANCER METASTATIC
     Route: 042
     Dates: start: 20181127, end: 20190104
  3. TRAMADOL. [Concomitant]
     Active Substance: TRAMADOL
     Indication: SPINAL COMPRESSION FRACTURE
     Dates: start: 20180904
  4. ACETAMINOPHEN. [Concomitant]
     Active Substance: ACETAMINOPHEN
     Indication: PRODUCT USED FOR UNKNOWN INDICATION
     Dates: start: 20181127, end: 20181211
  5. DIPHENHYDRAMINE. [Concomitant]
     Active Substance: DIPHENHYDRAMINE
     Indication: PRODUCT USED FOR UNKNOWN INDICATION
     Dates: start: 20181127, end: 20181211
  6. AVELUMAB [Suspect]
     Active Substance: AVELUMAB
     Indication: LUNG CANCER METASTATIC
     Route: 042
     Dates: start: 20181127, end: 20190104
  7. MELOXICAM. [Concomitant]
     Active Substance: MELOXICAM
     Indication: SPINAL COMPRESSION FRACTURE
     Dates: start: 20180904

REACTIONS (1)
  - Pneumonia [Recovering/Resolving]

NARRATIVE: CASE EVENT DATE: 20190116
